FAERS Safety Report 11395644 (Version 1)
Quarter: 2015Q3

REPORT INFORMATION
  Report Type: Spontaneous
  Country: US (occurrence: US)
  Receive Date: 20150819
  Receipt Date: 20150819
  Transmission Date: 20151125
  Serious: No
  Sender: FDA-Public Use
  Company Number: US-JNJFOC-20150714068

PATIENT
  Age: 68 Year
  Sex: Male
  Weight: 77.11 kg

DRUGS (8)
  1. TYLENOL WITH CODEINE [Suspect]
     Active Substance: ACETAMINOPHEN\CODEINE PHOSPHATE
     Indication: HALLUCINATION
     Route: 048
     Dates: start: 201507, end: 201507
  2. GINSENG [Concomitant]
     Active Substance: ASIAN GINSENG
     Indication: PRODUCT USED FOR UNKNOWN INDICATION
     Route: 065
  3. TYLENOL WITH CODEINE [Suspect]
     Active Substance: ACETAMINOPHEN\CODEINE PHOSPHATE
     Indication: NEURALGIA
     Route: 048
     Dates: start: 201507, end: 201507
  4. TYLENOL WITH CODEINE [Suspect]
     Active Substance: ACETAMINOPHEN\CODEINE PHOSPHATE
     Indication: BONE PAIN
     Route: 048
     Dates: start: 201507, end: 201507
  5. GOTU KOLA [Concomitant]
     Active Substance: GOTU KOLA
     Indication: PRODUCT USED FOR UNKNOWN INDICATION
     Route: 065
  6. GINGKO BILOBA (CHINESE HERB) [Concomitant]
     Indication: PRODUCT USED FOR UNKNOWN INDICATION
     Route: 065
  7. DOMIAN [Concomitant]
     Indication: PRODUCT USED FOR UNKNOWN INDICATION
     Route: 065
  8. TYLENOL WITH CODEINE [Suspect]
     Active Substance: ACETAMINOPHEN\CODEINE PHOSPHATE
     Indication: MYALGIA
     Route: 048
     Dates: start: 201507, end: 201507

REACTIONS (5)
  - Arthralgia [Unknown]
  - Withdrawal syndrome [Unknown]
  - Bedridden [Unknown]
  - Back pain [Unknown]
  - Product use issue [Unknown]

NARRATIVE: CASE EVENT DATE: 201507
